FAERS Safety Report 12306408 (Version 1)
Quarter: 2016Q2

REPORT INFORMATION
  Report Type: Spontaneous
  Country: BA (occurrence: BA)
  Receive Date: 20160426
  Receipt Date: 20160426
  Transmission Date: 20160815
  Serious: Yes (Death)
  Sender: FDA-Public Use
  Company Number: BA-PFIZER INC-2016224875

PATIENT
  Age: 79 Year
  Sex: Female

DRUGS (25)
  1. GARAMICIN [Concomitant]
     Active Substance: GENTAMICIN SULFATE
     Dosage: 80 MG, 2X/DAY
  2. CLIVARIN [Concomitant]
     Dosage: 1750 UNK, 12 HOURS BEFORE THE OPERATION
  3. DOPAMIN /00000101/ [Concomitant]
     Dosage: UNK
     Dates: start: 20160401
  4. MIDOL /00002701/ [Concomitant]
     Dosage: 1X1
  5. SIOFOR [Concomitant]
     Active Substance: METFORMIN HYDROCHLORIDE
     Dosage: UNK
  6. RANITAL /00550801/ [Concomitant]
     Dosage: UNK
     Dates: start: 20160401
  7. NACL [Concomitant]
     Active Substance: SODIUM CHLORIDE
     Dosage: UNK
     Dates: start: 20160401
  8. CALCIUM GLUCONATE. [Concomitant]
     Active Substance: CALCIUM GLUCONATE
     Dosage: 5 ML, 2X/DAY
     Dates: start: 20160401
  9. SKOPRYL [Concomitant]
     Dosage: 500 MG, 1X/DAY
  10. EFLORAN [Concomitant]
     Dosage: 500 MG, 3X/DAY
     Dates: start: 20160401
  11. FLORMIDAL /00634101/ [Concomitant]
     Dosage: 7.5 MG, SEVERAL HOURS BEFORE SURGERY
     Route: 048
  12. LONGACEPH [Concomitant]
     Dosage: 1 G, 2X/DAY
     Dates: start: 20160401
  13. KETONAL /00321701/ [Concomitant]
     Active Substance: KETOPROFEN
     Dosage: UNK
     Dates: start: 20160401
  14. TRODON /00599201/ [Concomitant]
     Dosage: UNK, AS NEEDED
     Dates: start: 20160401
  15. LASIX [Concomitant]
     Active Substance: FUROSEMIDE
     Dosage: UNK
     Dates: start: 20160402
  16. FRAGMIN [Suspect]
     Active Substance: DALTEPARIN SODIUM
     Dosage: 5000 IU, UNK
     Dates: start: 20160401, end: 20160404
  17. ATORIS [Concomitant]
     Active Substance: ATORVASTATIN CALCIUM
     Dosage: 10 MG, UNK
  18. SPASMEX /00376202/ [Concomitant]
     Active Substance: TROSPIUM CHLORIDE
     Dosage: UNK
     Dates: start: 20160401
  19. REGLAN [Concomitant]
     Active Substance: METOCLOPRAMIDE HYDROCHLORIDE
     Dosage: UNK
     Dates: start: 20160401
  20. FRAGMIN [Suspect]
     Active Substance: DALTEPARIN SODIUM
     Dosage: 2500 IU, UNK
     Dates: start: 20160405
  21. EFLORAN [Concomitant]
     Dosage: 400 MG, 2X/DAY
  22. GARAMICIN [Concomitant]
     Active Substance: GENTAMICIN SULFATE
     Dosage: 120 MG, 1X/DAY
     Dates: start: 20160401
  23. SODIUM BICARBONATE. [Concomitant]
     Active Substance: SODIUM BICARBONATE
     Dosage: 20 MMOL, UNK
     Dates: start: 20160402
  24. CONTROLOC /01263201/ [Concomitant]
     Dosage: 40 MG, 2X/DAY
     Dates: start: 20160402
  25. BYOL [Concomitant]
     Active Substance: BISOPROLOL
     Dosage: 1X1

REACTIONS (3)
  - Sudden death [Fatal]
  - Nausea [Fatal]
  - Vomiting [Fatal]

NARRATIVE: CASE EVENT DATE: 20160406
